FAERS Safety Report 7154645-9 (Version None)
Quarter: 2010Q4

REPORT INFORMATION
  Report Type: 
  Country: None (occurrence: None)
  Receive Date: 20101214
  Receipt Date: 20091119
  Transmission Date: 20110411
  Serious: No
  Sender: FDA-Public Use
  Company Number: US-AMGEN-KDL368708

PATIENT

DRUGS (6)
  1. ENBREL [Suspect]
     Indication: RHEUMATOID ARTHRITIS
     Dosage: 50 MG, QWK
     Route: 058
     Dates: start: 20090930, end: 20091111
  2. UNSPECIFIED STEROIDS [Concomitant]
  3. FLUCONAZOLE [Concomitant]
     Dosage: UNK UNK, UNK
     Route: 048
  4. NYSTATIN [Concomitant]
  5. OSELTAMIVIR PHOSPHATE [Concomitant]
     Dosage: UNK UNK, UNK
     Route: 048
  6. LEVOFLOXACIN [Concomitant]

REACTIONS (1)
  - PSORIASIS [None]
